FAERS Safety Report 12526660 (Version 1)
Quarter: 2016Q3

REPORT INFORMATION
  Report Type: Spontaneous
  Country: FR (occurrence: FR)
  Receive Date: 20160705
  Receipt Date: 20160705
  Transmission Date: 20161109
  Serious: Yes (Other)
  Sender: FDA-Public Use
  Company Number: FR-SA-2016SA117874

PATIENT
  Age: 73 Year
  Sex: Male

DRUGS (1)
  1. BCG FOR IMMUNOTHERAPY [Suspect]
     Active Substance: BACILLUS CALMETTE-GUERIN ANTIGEN, UNSPECIFIED SUBSTRAIN
     Indication: BLADDER CANCER
     Route: 043
     Dates: start: 2014, end: 2014

REACTIONS (17)
  - Purpura [Unknown]
  - Inflammation [Unknown]
  - Pyrexia [Unknown]
  - Hepatomegaly [Unknown]
  - Pancytopenia [Unknown]
  - Disseminated tuberculosis [Unknown]
  - Fall [Unknown]
  - Decreased appetite [Unknown]
  - Asthenia [Unknown]
  - Emphysema [Unknown]
  - Urinary bladder polyp [Unknown]
  - Splenic infarction [Unknown]
  - Benign prostatic hyperplasia [Unknown]
  - Granuloma [Unknown]
  - Weight decreased [Unknown]
  - Granulomatous dermatitis [Unknown]
  - Evans syndrome [Unknown]

NARRATIVE: CASE EVENT DATE: 201510
